FAERS Safety Report 6504622-3 (Version None)
Quarter: 2009Q4

REPORT INFORMATION
  Report Type: 
  Country: None (occurrence: None)
  Receive Date: 20091215
  Receipt Date: 20091204
  Transmission Date: 20100525
  Serious: Yes (Death, Hospitalization)
  Sender: FDA-Public Use
  Company Number: 2009AC000352

PATIENT
  Age: 82 Year
  Sex: Female

DRUGS (7)
  1. DIGOXIN [Suspect]
     Dosage: 0.25 MG; PO
     Route: 048
     Dates: start: 20070401, end: 20070801
  2. DIGOXIN [Suspect]
     Dosage: 0.125 MG; PO
     Route: 048
     Dates: start: 20070801
  3. FLEXERIL [Concomitant]
  4. CARDIZEM [Concomitant]
  5. LASIX [Concomitant]
  6. LOVENOX [Concomitant]
  7. POTASSIUM [Concomitant]

REACTIONS (15)
  - ATRIAL FIBRILLATION [None]
  - CARDIAC FAILURE CONGESTIVE [None]
  - DIZZINESS [None]
  - DYSPNOEA [None]
  - ECONOMIC PROBLEM [None]
  - FACIAL PALSY [None]
  - FALL [None]
  - FATIGUE [None]
  - HYPERTENSION [None]
  - HYPOKALAEMIA [None]
  - LETHARGY [None]
  - MULTIPLE INJURIES [None]
  - PALPITATIONS [None]
  - RESTLESS LEGS SYNDROME [None]
  - SURGERY [None]
